FAERS Safety Report 12376582 (Version 1)
Quarter: 2016Q2

REPORT INFORMATION
  Report Type: Spontaneous
  Country: US (occurrence: None)
  Receive Date: 20160516
  Receipt Date: 20160516
  Transmission Date: 20160815
  Serious: Yes (Other)
  Sender: FDA-Public Use
  Company Number: None

PATIENT
  Age: 42 Year

DRUGS (1)
  1. MESTINON [Suspect]
     Active Substance: PYRIDOSTIGMINE BROMIDE
     Indication: MYASTHENIA GRAVIS
     Route: 048

REACTIONS (6)
  - Diarrhoea [None]
  - Mucous stools [None]
  - Bladder disorder [None]
  - Asthenia [None]
  - Urinary incontinence [None]
  - Muscle spasms [None]
